FAERS Safety Report 8345457-9 (Version None)
Quarter: 2012Q2

REPORT INFORMATION
  Report Type: 
  Country: None (occurrence: None)
  Receive Date: 20120508
  Receipt Date: 20120504
  Transmission Date: 20120825
  Serious: Yes (Hospitalization)
  Sender: FDA-Public Use
  Company Number: GB-FRI-1000025103

PATIENT
  Sex: Female

DRUGS (5)
  1. MEMANTINE HCL [Suspect]
     Indication: DEMENTIA ALZHEIMER'S TYPE
     Dosage: TITRATION DOSE
     Route: 048
     Dates: start: 20110429, end: 20110525
  2. DONEPEZIL HCL [Concomitant]
     Dosage: 10 MG
     Route: 048
     Dates: start: 20070608, end: 20110429
  3. MEMANTINE HCL [Suspect]
     Dosage: 20 MG
     Route: 048
     Dates: start: 20110526, end: 20110530
  4. MEMANTINE HCL [Suspect]
     Dosage: 15 MG
     Route: 048
     Dates: start: 20110531, end: 20110718
  5. MEMANTINE HCL [Suspect]
     Dosage: 10 MG
     Route: 048
     Dates: start: 20110719

REACTIONS (4)
  - FATIGUE [None]
  - FALL [None]
  - CONFUSIONAL STATE [None]
  - MOBILITY DECREASED [None]
